FAERS Safety Report 17745279 (Version 2)
Quarter: 2020Q2

REPORT INFORMATION
  Report Type: Spontaneous
  Country: US (occurrence: US)
  Receive Date: 20200504
  Receipt Date: 20200531
  Transmission Date: 20200714
  Serious: No
  Sender: FDA-Public Use
  Company Number: US-009507513-2004USA008523

PATIENT
  Age: 27 Year
  Sex: Female
  Weight: 78.01 kg

DRUGS (2)
  1. NEXPLANON [Suspect]
     Active Substance: ETONOGESTREL
     Dosage: 1 IMPLANT
     Dates: start: 2018, end: 2020
  2. NEXPLANON [Suspect]
     Active Substance: ETONOGESTREL
     Dosage: 1 IMPLANT
     Route: 059

REACTIONS (5)
  - Device deployment issue [Recovered/Resolved]
  - Device issue [Recovered/Resolved]
  - Complication of device removal [Recovered/Resolved]
  - Pain [Recovered/Resolved]
  - Complication associated with device [Recovered/Resolved]

NARRATIVE: CASE EVENT DATE: 2018
